FAERS Safety Report 7347925-5 (Version None)
Quarter: 2011Q1

REPORT INFORMATION
  Report Type: 
  Country: None (occurrence: None)
  Receive Date: 20110302
  Receipt Date: 20110221
  Transmission Date: 20110831
  Serious: Yes (Other)
  Sender: FDA-Public Use
  Company Number: 2011SP008040

PATIENT
  Age: 81 Year
  Sex: Female

DRUGS (1)
  1. REXER FLAS (MIRTAZAPINE / 01293201/ ) [Suspect]
     Indication: DEPRESSION
     Dosage: 15 MG, QD, PO
     Route: 048
     Dates: start: 20101018, end: 20101021

REACTIONS (5)
  - SINUS TACHYCARDIA [None]
  - SOMNOLENCE [None]
  - HYPERHIDROSIS [None]
  - NAUSEA [None]
  - HYPOTENSION [None]
